FAERS Safety Report 4981326-X (Version None)
Quarter: 2006Q2

REPORT INFORMATION
  Report Type: 
  Country: None (occurrence: None)
  Receive Date: 20060424
  Receipt Date: 20060324
  Transmission Date: 20061013
  Serious: Yes (Hospitalization)
  Sender: FDA-Public Use
  Company Number: US-MERCK-0603USA04305

PATIENT
  Age: 70 Year
  Sex: Male
  Weight: 104 kg

DRUGS (7)
  1. VIOXX [Suspect]
     Indication: ARTHRITIS
     Route: 048
     Dates: start: 20010801, end: 20040529
  2. DILANTIN [Concomitant]
     Route: 065
  3. HYDROCHLOROTHIAZIDE [Concomitant]
     Route: 065
  4. LISINOPRIL [Concomitant]
     Route: 065
  5. COUMADIN [Concomitant]
     Route: 065
  6. DARVOCET [Concomitant]
     Route: 065
  7. ZANTAC [Concomitant]
     Route: 065

REACTIONS (14)
  - AORTIC ARTERIOSCLEROSIS [None]
  - CEREBELLAR INFARCTION [None]
  - CEREBROVASCULAR ACCIDENT [None]
  - DYSPNOEA [None]
  - HYPERLIPIDAEMIA [None]
  - HYPERTENSION [None]
  - OBESITY [None]
  - PAIN IN EXTREMITY [None]
  - PROTEIN TOTAL INCREASED [None]
  - RETINOPATHY [None]
  - SLEEP APNOEA SYNDROME [None]
  - URINARY INCONTINENCE [None]
  - VENTRICULAR HYPERTROPHY [None]
  - VERTEBRAL ARTERY OCCLUSION [None]
